FAERS Safety Report 6073994-9 (Version None)
Quarter: 2009Q1

REPORT INFORMATION
  Report Type: 
  Country: None (occurrence: None)
  Receive Date: 20090209
  Receipt Date: 20090209
  Transmission Date: 20090719
  Serious: Yes (Life-Threatening)
  Sender: FDA-Public Use
  Company Number: None

PATIENT
  Sex: Male
  Weight: 83.0083 kg

DRUGS (1)
  1. XYLOCAINE [Suspect]
     Indication: COLONOSCOPY
     Dosage: 50 MG -I THINK- ONCE
     Dates: start: 20090126, end: 20090126

REACTIONS (3)
  - ATRIOVENTRICULAR BLOCK [None]
  - DRUG INTERACTION [None]
  - PROCEDURAL COMPLICATION [None]
